FAERS Safety Report 15474855 (Version 1)
Quarter: 2018Q4

REPORT INFORMATION
  Report Type: Spontaneous
  Country: US (occurrence: US)
  Receive Date: 20181008
  Receipt Date: 20181008
  Transmission Date: 20190205
  Serious: No
  Sender: FDA-Public Use
  Company Number: US-ELI_LILLY_AND_COMPANY-US201810003436

PATIENT
  Sex: Female

DRUGS (3)
  1. TALTZ [Suspect]
     Active Substance: IXEKIZUMAB
     Dosage: UNK, UNKNOWN
     Route: 058
  2. TALTZ [Suspect]
     Active Substance: IXEKIZUMAB
     Indication: PSORIASIS
     Dosage: UNK, UNKNOWN
     Route: 058
  3. TALTZ [Suspect]
     Active Substance: IXEKIZUMAB
     Dosage: UNK, UNKNOWN
     Route: 058

REACTIONS (1)
  - Hyperhidrosis [Not Recovered/Not Resolved]
